FAERS Safety Report 7031279-8 (Version None)
Quarter: 2010Q4

REPORT INFORMATION
  Report Type: 
  Country: None (occurrence: None)
  Receive Date: 20101006
  Receipt Date: 20100929
  Transmission Date: 20110411
  Serious: Yes (Hospitalization)
  Sender: FDA-Public Use
  Company Number: B0670026A

PATIENT
  Age: 40 Year
  Sex: Female

DRUGS (1)
  1. LAMICTAL [Suspect]
     Indication: EPILEPSY
     Route: 065

REACTIONS (6)
  - CONFUSIONAL STATE [None]
  - DELIRIUM [None]
  - DRUG HYPERSENSITIVITY [None]
  - INTENTIONAL OVERDOSE [None]
  - PULMONARY OEDEMA [None]
  - VOMITING [None]
